FAERS Safety Report 8139911-2 (Version None)
Quarter: 2012Q1

REPORT INFORMATION
  Report Type: 
  Country: None (occurrence: None)
  Receive Date: 20120215
  Receipt Date: 20120207
  Transmission Date: 20120608
  Serious: Yes (Other)
  Sender: FDA-Public Use
  Company Number: US-ROCHE-793897

PATIENT
  Sex: Male
  Weight: 95.34 kg

DRUGS (3)
  1. MOTRIN [Concomitant]
  2. ASPIRIN [Concomitant]
  3. ACCUTANE [Suspect]
     Indication: PRODUCT USED FOR UNKNOWN INDICATION
     Route: 065
     Dates: start: 19840310, end: 19850503

REACTIONS (5)
  - COLITIS ULCERATIVE [None]
  - BLOOD TRIGLYCERIDES INCREASED [None]
  - DEPRESSION [None]
  - INFLAMMATORY BOWEL DISEASE [None]
  - SUICIDAL IDEATION [None]
